FAERS Safety Report 17807153 (Version 2)
Quarter: 2020Q4

REPORT INFORMATION
  Report Type: Report from Study
  Country: BE (occurrence: BE)
  Receive Date: 20200520
  Receipt Date: 20201216
  Transmission Date: 20210113
  Serious: Yes (Other)
  Sender: FDA-Public Use
  Company Number: BE-MYLANLABS-2020M1048518

PATIENT
  Sex: Female

DRUGS (1)
  1. PREGABALIN. [Suspect]
     Active Substance: PREGABALIN
     Indication: ANXIETY
     Dosage: 75 MG, 2X/DAY
     Route: 065

REACTIONS (5)
  - Off label use [Unknown]
  - Vascular dementia [Recovered/Resolved]
  - Hypersomnia [Recovered/Resolved]
  - Product use in unapproved indication [Unknown]
  - Drug ineffective for unapproved indication [Unknown]
